FAERS Safety Report 13328676 (Version 1)
Quarter: 2017Q1

REPORT INFORMATION
  Report Type: Report from Study
  Country: US (occurrence: US)
  Receive Date: 20170313
  Receipt Date: 20170313
  Transmission Date: 20170428
  Serious: Yes (Other)
  Sender: FDA-Public Use
  Company Number: PHHY2015US126540

PATIENT
  Sex: Female

DRUGS (2)
  1. VOTRIENT [Suspect]
     Active Substance: PAZOPANIB HYDROCHLORIDE
     Indication: RENAL CELL CARCINOMA
     Dosage: UNK
     Route: 065
     Dates: start: 201409, end: 20150612
  2. ASPIRIN (BABY) [Concomitant]
     Active Substance: ASPIRIN
     Indication: PRODUCT USED FOR UNKNOWN INDICATION
     Route: 065

REACTIONS (20)
  - Second primary malignancy [Unknown]
  - Flushing [Unknown]
  - Retching [Unknown]
  - Diarrhoea [Unknown]
  - Impaired healing [Unknown]
  - Scar [Unknown]
  - Alopecia [Unknown]
  - Metastases to kidney [Recovered/Resolved]
  - Incision site haemorrhage [Recovering/Resolving]
  - Adverse drug reaction [Unknown]
  - Hair colour changes [Recovered/Resolved]
  - Adrenal gland cancer [Recovered/Resolved]
  - Malaise [Unknown]
  - Wound haemorrhage [Unknown]
  - Feeling hot [Unknown]
  - Thrombosis [Unknown]
  - Dysgeusia [Unknown]
  - Scab [Recovered/Resolved]
  - Skin lesion [Recovered/Resolved]
  - Stomatitis [Unknown]
